FAERS Safety Report 9330732 (Version 1)
Quarter: 2013Q2

REPORT INFORMATION
  Report Type: Report from Study
  Country: US (occurrence: US)
  Receive Date: 20130605
  Receipt Date: 20130605
  Transmission Date: 20140414
  Serious: Yes (Hospitalization)
  Sender: FDA-Public Use
  Company Number: US-UCBSA-026546

PATIENT
  Age: 25 Year
  Sex: Female
  Weight: 44 kg

DRUGS (8)
  1. CIMZIA [Suspect]
     Indication: CROHN^S DISEASE
     Route: 058
     Dates: start: 20110110, end: 20110125
  2. CIMZIA [Suspect]
     Indication: CROHN^S DISEASE
     Route: 058
     Dates: start: 20110210
  3. APRISO [Concomitant]
     Indication: CROHN^S DISEASE
     Dates: start: 200909
  4. FLORASTOR [Concomitant]
     Indication: CROHN^S DISEASE
  5. FOLIC ACID [Concomitant]
     Dosage: 1 MG
     Route: 048
  6. HYOSCYAMINE [Concomitant]
     Dosage: 0.125 MG
     Route: 060
  7. NEXIUM [Concomitant]
     Indication: CROHN^S DISEASE
  8. LOMOTIL [Concomitant]
     Indication: CROHN^S DISEASE

REACTIONS (1)
  - Pharyngitis streptococcal [Recovered/Resolved with Sequelae]
